FAERS Safety Report 7031066-0 (Version None)
Quarter: 2010Q4

REPORT INFORMATION
  Report Type: 
  Country: None (occurrence: None)
  Receive Date: 20101006
  Receipt Date: 20100928
  Transmission Date: 20110411
  Serious: Yes (Death)
  Sender: FDA-Public Use
  Company Number: JP-ABBOTT-10P-087-0632368-00

PATIENT
  Sex: Male
  Weight: 65.8 kg

DRUGS (5)
  1. HUMIRA [Suspect]
     Indication: PSORIASIS
     Route: 058
     Dates: start: 20060830, end: 20100222
  2. HUMIRA [Suspect]
     Dates: start: 20100208, end: 20100208
  3. HUMIRA [Suspect]
     Dates: start: 20100222, end: 20100222
  4. HEPARIN [Concomitant]
     Indication: PSORIASIS
     Route: 061
     Dates: start: 20100314
  5. EPINASTINE HYDROCHLORIDE [Concomitant]
     Indication: PSORIASIS
     Route: 048
     Dates: start: 20100314

REACTIONS (1)
  - MYOCARDIAL INFARCTION [None]
